FAERS Safety Report 4932700-9 (Version None)
Quarter: 2006Q1

REPORT INFORMATION
  Report Type: 
  Country: None (occurrence: None)
  Receive Date: 20060301
  Receipt Date: 20060214
  Transmission Date: 20060701
  Serious: Yes (Death, Hospitalization)
  Sender: FDA-Public Use
  Company Number: 2005-00995

PATIENT
  Age: 58 Year
  Sex: Female

DRUGS (7)
  1. VELCADE [Suspect]
     Indication: MULTIPLE MYELOMA
     Dosage: 1.30 MG/M2, 2/WEEK, IV BOLUS
     Route: 040
     Dates: start: 20050414, end: 20050425
  2. ALLOPURINOL [Concomitant]
  3. MS CONTIN [Concomitant]
  4. DECADRON SRC [Concomitant]
  5. VICODIN [Concomitant]
  6. ONDANSETRON [Concomitant]
  7. RED BLOOD CELLS [Concomitant]

REACTIONS (28)
  - ACIDOSIS [None]
  - ACUTE RESPIRATORY DISTRESS SYNDROME [None]
  - ANAEMIA [None]
  - AORTIC ARTERIOSCLEROSIS [None]
  - BLOOD ALBUMIN DECREASED [None]
  - BLOOD CALCIUM INCREASED [None]
  - BLOOD MAGNESIUM INCREASED [None]
  - CHRONIC OBSTRUCTIVE PULMONARY DISEASE [None]
  - COLONIC FISTULA [None]
  - CONSTIPATION [None]
  - DEHYDRATION [None]
  - GASTROINTESTINAL NECROSIS [None]
  - HYPOTENSION [None]
  - INTESTINAL INFARCTION [None]
  - INTESTINAL ISCHAEMIA [None]
  - LABORATORY TEST ABNORMAL [None]
  - LERICHE SYNDROME [None]
  - MALNUTRITION [None]
  - MULTI-ORGAN FAILURE [None]
  - PAIN [None]
  - PERIPHERAL ISCHAEMIA [None]
  - PERITONITIS [None]
  - RENAL FAILURE [None]
  - RENAL MASS [None]
  - RESPIRATORY FAILURE [None]
  - SEPTIC SHOCK [None]
  - SUPERIOR MESENTERIC ARTERY SYNDROME [None]
  - THROMBOSIS MESENTERIC VESSEL [None]
